FAERS Safety Report 8924909 (Version 1)
Quarter: 2012Q4

REPORT INFORMATION
  Report Type: Spontaneous
  Country: DK (occurrence: None)
  Receive Date: 20121116
  Receipt Date: 20121116
  Transmission Date: 20130627
  Serious: Yes (Hospitalization)
  Sender: FDA-Public Use
  Company Number: 2012MA013377

PATIENT
  Age: 5 Month
  Sex: Female

DRUGS (2)
  1. RANITIDINE [Suspect]
     Route: 048
  2. CETIRIZINE [Suspect]
     Dates: start: 20120417, end: 20120422

REACTIONS (6)
  - Gastric ulcer [None]
  - Screaming [None]
  - Crying [None]
  - Decreased appetite [None]
  - Drug dispensing error [None]
  - Wrong drug administered [None]
